FAERS Safety Report 5079993-8 (Version None)
Quarter: 2006Q3

REPORT INFORMATION
  Report Type: 
  Country: None (occurrence: None)
  Receive Date: 20060720
  Receipt Date: 20051031
  Transmission Date: 20061208
  Serious: Yes (Other)
  Sender: FDA-Public Use
  Company Number: 2005150923

PATIENT
  Sex: Male
  Weight: 83.9154 kg

DRUGS (4)
  1. CELEBREX [Suspect]
     Indication: KNEE OPERATION
  2. VIOXX [Suspect]
     Indication: ARTHRALGIA
  3. VIOXX [Suspect]
     Indication: ARTHRITIS
  4. LOVASTATIN [Concomitant]

REACTIONS (4)
  - ARTHRALGIA [None]
  - ARTHRITIS [None]
  - GOUT [None]
  - MYOCARDIAL INFARCTION [None]
